FAERS Safety Report 10757484 (Version 1)
Quarter: 2015Q1

REPORT INFORMATION
  Report Type: Spontaneous
  Country: US (occurrence: None)
  Receive Date: 20150202
  Receipt Date: 20150202
  Transmission Date: 20150721
  Serious: Yes (Hospitalization, Other)
  Sender: FDA-Public Use
  Company Number: None

PATIENT
  Age: 36 Year
  Sex: Male
  Weight: 86.18 kg

DRUGS (2)
  1. LATUDA [Suspect]
     Active Substance: LURASIDONE HYDROCHLORIDE
     Indication: SCHIZOAFFECTIVE DISORDER
     Dosage: 80 MG WITH A FULL MEAL, TAKEN BY MOUTH
     Route: 048
     Dates: start: 20140915, end: 20150121
  2. LATUDA [Suspect]
     Active Substance: LURASIDONE HYDROCHLORIDE
     Indication: DEPRESSION
     Dosage: 80 MG WITH A FULL MEAL, TAKEN BY MOUTH
     Route: 048
     Dates: start: 20140915, end: 20150121

REACTIONS (6)
  - Drug dependence [None]
  - Rash [None]
  - Drug ineffective [None]
  - Hallucination [None]
  - Delusion [None]
  - Hypophagia [None]

NARRATIVE: CASE EVENT DATE: 20140910
